FAERS Safety Report 22643758 (Version 1)
Quarter: 2023Q2

REPORT INFORMATION
  Report Type: Report from Study
  Country: JP (occurrence: JP)
  Receive Date: 20230627
  Receipt Date: 20230627
  Transmission Date: 20230722
  Serious: Yes (Other)
  Sender: FDA-Public Use
  Company Number: JP-RECORDATI RARE DISEASE INC.-2023003887

PATIENT
  Age: 0 Year
  Sex: Female

DRUGS (3)
  1. NEOPROFEN [Suspect]
     Active Substance: IBUPROFEN LYSINE
     Indication: Patent ductus arteriosus
     Dosage: 20 MILLIGRAM
     Route: 042
     Dates: start: 20191218, end: 20191218
  2. NEOPROFEN [Suspect]
     Active Substance: IBUPROFEN LYSINE
     Dosage: 11 MILLIGRAM
     Route: 042
     Dates: start: 20191219, end: 20191219
  3. DEXTROSE [Concomitant]
     Active Substance: DEXTROSE\DEXTROSE MONOHYDRATE
     Indication: Hypoglycaemia
     Dosage: UNK
     Route: 042
     Dates: start: 20191217, end: 20191223

REACTIONS (2)
  - Haemorrhage intracranial [Unknown]
  - Periventricular leukomalacia [Unknown]

NARRATIVE: CASE EVENT DATE: 20191220
